FAERS Safety Report 14514230 (Version 1)
Quarter: 2018Q1

REPORT INFORMATION
  Report Type: Spontaneous
  Country: US (occurrence: US)
  Receive Date: 20180209
  Receipt Date: 20180209
  Transmission Date: 20180509
  Serious: No
  Sender: FDA-Public Use
  Company Number: US-BAUSCH-BL-2017-000057

PATIENT
  Age: 14 Year
  Sex: Female

DRUGS (4)
  1. BENZACLIN [Suspect]
     Active Substance: BENZOYL PEROXIDE\CLINDAMYCIN PHOSPHATE
     Dosage: ONCE DAILY IN THE MORNING
     Route: 061
     Dates: start: 201612
  2. BENZACLIN [Suspect]
     Active Substance: BENZOYL PEROXIDE\CLINDAMYCIN PHOSPHATE
     Indication: ACNE
     Dosage: ONCE DAILY IN THE MORNING
     Route: 061
     Dates: start: 20161205, end: 201612
  3. RETIN-A [Suspect]
     Active Substance: TRETINOIN
     Dosage: ONCE NIGHTLY IN THE EVENING
     Route: 061
     Dates: start: 201612
  4. RETIN-A [Suspect]
     Active Substance: TRETINOIN
     Indication: ACNE
     Dosage: ONCE NIGHTLY IN THE EVENING
     Route: 061
     Dates: start: 20161205, end: 201612

REACTIONS (3)
  - Pruritus [Recovered/Resolved]
  - Skin irritation [Recovered/Resolved]
  - Dry skin [Recovered/Resolved]

NARRATIVE: CASE EVENT DATE: 201612
